FAERS Safety Report 9958611 (Version 1)
Quarter: 2014Q1

REPORT INFORMATION
  Report Type: Spontaneous
  Country: US (occurrence: None)
  Receive Date: 20140124
  Receipt Date: 20140124
  Transmission Date: 20141002
  Serious: Yes (Other)
  Sender: FDA-Public Use
  Company Number: 2010AP001973

PATIENT
  Age: 58 Year
  Sex: Male

DRUGS (11)
  1. METFORMIN HCL TABLETS [Suspect]
     Indication: TYPE 2 DIABETES MELLITUS
     Route: 048
  2. GLIPIZIDE TABLETS [Suspect]
     Indication: TYPE 2 DIABETES MELLITUS
     Route: 048
  3. ROSUVASTATIN [Concomitant]
  4. FENOFIBRATE [Concomitant]
  5. ACETYLSALICYLIC ACID [Concomitant]
  6. LISINOPRIL [Concomitant]
  7. GABAPENTIN [Concomitant]
  8. TRAMADOL [Concomitant]
  9. NABUMETONE [Concomitant]
  10. NITROGLYCERIN COMP. [Concomitant]
  11. INSULIN GLARGINE [Concomitant]

REACTIONS (1)
  - Hypoglycaemia [None]
